FAERS Safety Report 5319337-7 (Version None)
Quarter: 2007Q2

REPORT INFORMATION
  Report Type: 
  Country: None (occurrence: None)
  Receive Date: 20070508
  Receipt Date: 20070426
  Transmission Date: 20071010
  Serious: Yes (Death, Hospitalization)
  Sender: FDA-Public Use
  Company Number: US-PFIZER INC-2005144880

PATIENT
  Sex: Female

DRUGS (19)
  1. NEURONTIN [Suspect]
     Indication: NEUROPATHY PERIPHERAL
  2. NEURONTIN [Suspect]
     Indication: FIBROMYALGIA
  3. NEURONTIN [Suspect]
     Indication: FATIGUE
  4. VICODIN ES [Concomitant]
     Indication: PAIN
  5. PROZAC [Concomitant]
     Indication: MOOD SWINGS
  6. TRAZODONE HCL [Concomitant]
     Indication: INSOMNIA
  7. XANAX [Concomitant]
     Indication: PARAESTHESIA
  8. XANAX [Concomitant]
     Indication: CHEST PAIN
  9. MIDRIN [Concomitant]
     Indication: MIGRAINE
  10. LORCET-HD [Concomitant]
     Indication: PAIN
  11. NITROGLYCERIN [Concomitant]
  12. WELLBUTRIN [Concomitant]
     Indication: ASTHENIA
  13. VIOXX [Concomitant]
     Indication: ARTHRALGIA
  14. METHYLPHENIDATE HCL [Concomitant]
     Indication: MENTAL DISORDER
  15. ALL OTHER THERAPEUTIC PRODUCTS [Concomitant]
     Indication: FIBROMYALGIA
  16. FLEXERIL [Concomitant]
     Indication: MUSCLE SPASMS
  17. GABITRIL [Concomitant]
  18. LEXAPRO [Concomitant]
  19. CELEBREX [Concomitant]
     Indication: PAIN

REACTIONS (8)
  - APALLIC SYNDROME [None]
  - CEREBRAL HAEMORRHAGE [None]
  - COMPLETED SUICIDE [None]
  - DRUG INEFFECTIVE FOR UNAPPROVED INDICATION [None]
  - DRUG LEVEL [None]
  - ECCHYMOSIS [None]
  - INTRACRANIAL HAEMATOMA [None]
  - SKULL FRACTURED BASE [None]
